FAERS Safety Report 8232526-7 (Version None)
Quarter: 2012Q1

REPORT INFORMATION
  Report Type: 
  Country: None (occurrence: None)
  Receive Date: 20120323
  Receipt Date: 20120316
  Transmission Date: 20120608
  Serious: Yes (Hospitalization, Other)
  Sender: FDA-Public Use
  Company Number: US-ABBOTT-12P-163-0916442-00

PATIENT
  Sex: Female
  Weight: 61.29 kg

DRUGS (13)
  1. FLONASE [Concomitant]
     Indication: HYPERSENSITIVITY
  2. HUMIRA [Suspect]
     Indication: RHEUMATOID ARTHRITIS
     Dates: start: 20120201
  3. HUMIRA [Suspect]
     Indication: RHEUMATOID ARTHRITIS
     Dates: start: 20050101, end: 20120201
  4. CELEBREX [Concomitant]
     Indication: RHEUMATOID ARTHRITIS
  5. RANITIDINE [Concomitant]
     Indication: GASTRIC DISORDER
  6. VITAMIN B-12 [Concomitant]
     Indication: VITAMIN SUPPLEMENTATION
     Dosage: MONTHLY
     Route: 050
  7. FOLIC ACID [Concomitant]
     Indication: VITAMIN SUPPLEMENTATION
  8. ESTROGEN [Concomitant]
     Indication: HORMONE REPLACEMENT THERAPY
  9. METHOTREXATE [Concomitant]
     Indication: RHEUMATOID ARTHRITIS
  10. TRAMADOL HCL [Concomitant]
     Indication: RHEUMATOID ARTHRITIS
  11. PLAQUENIL [Concomitant]
     Indication: RHEUMATOID ARTHRITIS
  12. VICODIN [Suspect]
     Indication: PAIN
     Dates: start: 20100501, end: 20100501
  13. HYDROXYCHLOROQUINE SULFATE [Concomitant]
     Indication: RHEUMATOID ARTHRITIS

REACTIONS (11)
  - NECROTISING FASCIITIS STREPTOCOCCAL [None]
  - PAIN [None]
  - DRUG INEFFECTIVE [None]
  - PAIN IN EXTREMITY [None]
  - INJECTION SITE PAIN [None]
  - OEDEMA PERIPHERAL [None]
  - PARAESTHESIA [None]
  - SKIN DISCOLOURATION [None]
  - INFECTION [None]
  - BLISTER [None]
  - LOCALISED INFECTION [None]
